FAERS Safety Report 6830368-8 (Version None)
Quarter: 2010Q3

REPORT INFORMATION
  Report Type: 
  Country: None (occurrence: None)
  Receive Date: 20100712
  Receipt Date: 20100630
  Transmission Date: 20110219
  Serious: No
  Sender: FDA-Public Use
  Company Number: US-BIOGENIDEC-2010BI021988

PATIENT
  Age: 58 Year
  Sex: Female

DRUGS (3)
  1. TYSABRI [Suspect]
     Indication: MULTIPLE SCLEROSIS
     Route: 042
     Dates: start: 20081010
  2. AVONEX [Concomitant]
     Indication: MULTIPLE SCLEROSIS
     Route: 030
     Dates: start: 20050505, end: 20050609
  3. AVONEX [Concomitant]
     Route: 030
     Dates: start: 20081001, end: 20081001

REACTIONS (10)
  - APHONIA [None]
  - ASTHENIA [None]
  - BRONCHITIS [None]
  - BRONCHOPNEUMONIA [None]
  - COUGH [None]
  - DYSPNOEA [None]
  - FATIGUE [None]
  - IMMUNOSUPPRESSION [None]
  - MUSCLE STRAIN [None]
  - SKELETAL INJURY [None]
